FAERS Safety Report 12233052 (Version 1)
Quarter: 2016Q2

REPORT INFORMATION
  Report Type: Other
  Country: DE (occurrence: DE)
  Receive Date: 20160403
  Receipt Date: 20160403
  Transmission Date: 20160815
  Serious: Yes (Congenital Anomaly, Other)
  Sender: FDA-Public Use
  Company Number: DE-MYLANLABS-2016M1012436

PATIENT

DRUGS (5)
  1. SERTRALINE [Suspect]
     Active Substance: SERTRALINE HYDROCHLORIDE
     Indication: ACUTE PSYCHOSIS
     Dosage: 100 MG, QD (100 [MG/D ])
     Route: 064
     Dates: start: 20150220, end: 20151004
  2. ATOSIL [Suspect]
     Active Substance: PROMETHAZINE HYDROCHLORIDE
     Indication: ACUTE PSYCHOSIS
     Dosage: 50 [MG/D ]/ IF REQUIRED, UNKNOWN HOW OFTEN, DOSAGE BETWEEN 50 MG/D AND 30 MG/D
     Route: 064
     Dates: start: 20150116, end: 20151004
  3. CLOZAPINE. [Suspect]
     Active Substance: CLOZAPINE
     Indication: ACUTE PSYCHOSIS
     Dosage: 75 MG, QD, 75 [MG/D ]
     Route: 064
     Dates: start: 20150721, end: 20151004
  4. FLUANXOL [Suspect]
     Active Substance: FLUPENTIXOL
     Indication: ACUTE PSYCHOSIS
     Dosage: 2 MG, BID 4 [MG/D ] { 2 MG MILLIGRAM(S), 2 IN 1 DAY } ]
     Route: 064
     Dates: start: 20150220, end: 20150720
  5. FEMIBION                           /01597501/ [Concomitant]
     Active Substance: CALCIUM PHOSPHATE, DIBASIC, ANHYDROUS\FERROUS SUCCINATE\MAGNESIUM HYDROXIDE
     Indication: PROPHYLAXIS OF NEURAL TUBE DEFECT
     Dosage: UNK
     Route: 064
     Dates: start: 20150413, end: 20151004

REACTIONS (3)
  - Talipes [Unknown]
  - Foetal exposure during pregnancy [Unknown]
  - Respiratory disorder neonatal [Recovered/Resolved]

NARRATIVE: CASE EVENT DATE: 20151004
